FAERS Safety Report 10256905 (Version 1)
Quarter: 2014Q2

REPORT INFORMATION
  Report Type: Spontaneous
  Country: FR (occurrence: FR)
  Receive Date: 20140625
  Receipt Date: 20140625
  Transmission Date: 20141212
  Serious: Yes (Life-Threatening, Hospitalization)
  Sender: FDA-Public Use
  Company Number: FR-ROCHE-1422930

PATIENT
  Age: 81 Year
  Sex: Female

DRUGS (5)
  1. LUCENTIS [Suspect]
     Indication: AGE-RELATED MACULAR DEGENERATION
     Dosage: 10 MG/ML?PATIENT RECEIVED ANOTHER DOSE OF LUCENTIS ON 28/MAR/2014, THEN LUCENTIS WAS DISCONTINUED.
     Route: 050
     Dates: start: 20140228, end: 20140328
  2. MACROGOL 4000 [Concomitant]
     Route: 065
  3. LEXOMIL [Concomitant]
     Route: 065
  4. GINKOR FORT [Concomitant]
  5. DOLIPRANE [Concomitant]

REACTIONS (2)
  - Ischaemic stroke [Recovered/Resolved with Sequelae]
  - Cerebral ischaemia [Recovered/Resolved with Sequelae]
